FAERS Safety Report 7286592-6 (Version None)
Quarter: 2011Q1

REPORT INFORMATION
  Report Type: 
  Country: None (occurrence: None)
  Receive Date: 20110210
  Receipt Date: 20110208
  Transmission Date: 20110831
  Serious: Yes (Hospitalization, Other)
  Sender: FDA-Public Use
  Company Number: US-PFIZER INC-2010036977

PATIENT
  Sex: Male
  Weight: 70 kg

DRUGS (27)
  1. DILANTIN-125 [Suspect]
     Indication: CONVULSION
     Dosage: 1 G, UNK
     Dates: start: 19971019
  2. ATIVAN [Concomitant]
     Dosage: 1 MG, AS NEEDED
     Route: 030
  3. AXID [Concomitant]
     Dosage: 150 MG, 2X/DAY
     Route: 048
  4. DILANTIN-125 [Suspect]
     Dosage: 200 MG, 3X/DAY
     Dates: start: 19971107, end: 19971112
  5. DECADRON [Concomitant]
     Dosage: 2 MG, UNK
     Route: 042
  6. NORVASC [Concomitant]
     Dosage: 10 MG, 1X/DAY
     Route: 048
  7. LOPRESSOR [Concomitant]
  8. DILANTIN [Suspect]
     Indication: CONVULSION
     Dosage: 100 MG, 3X/DAY
     Dates: start: 19971019
  9. DILANTIN [Suspect]
     Dosage: 300 MG, 3X/DAY
     Dates: start: 19971023
  10. DILANTIN [Suspect]
     Dosage: UNK
     Dates: start: 19971028
  11. CIPROFLOXACIN [Concomitant]
     Dosage: 500 MG, 2X/DAY
     Route: 048
     Dates: start: 19971104, end: 19971113
  12. DILANTIN [Suspect]
     Dosage: 100 MG, 3X/DAY
     Route: 048
     Dates: start: 19971025
  13. DILANTIN-125 [Suspect]
     Dosage: 200 MG, 2X/DAY
     Route: 048
     Dates: start: 19971103
  14. DILANTIN [Suspect]
     Dosage: UNK
     Route: 048
     Dates: start: 19971030
  15. KEFLEX [Concomitant]
     Dosage: 500 MG, 2X/DAY
     Route: 048
     Dates: start: 19971106, end: 19971112
  16. PEPCID [Concomitant]
  17. DILANTIN-125 [Suspect]
     Dosage: 500 MG, 1X/DAY
     Route: 048
  18. DILANTIN [Suspect]
     Dosage: 100 MG, 3X/DAY
     Dates: start: 19971023
  19. SYNTHROID [Concomitant]
     Dosage: 0.15 MG, 1X/DAY
     Route: 048
  20. LABETALOL [Concomitant]
     Dosage: 200 MG, 2X/DAY
     Route: 048
  21. LASIX [Concomitant]
     Dosage: 40 MG, UNK
  22. DILANTIN-125 [Suspect]
     Dosage: 100 MG, 3X/DAY
  23. DILANTIN [Suspect]
     Dosage: UNK MG, UNK
     Route: 048
     Dates: start: 19971026
  24. DILANTIN [Suspect]
     Dosage: UNK
     Route: 048
     Dates: start: 19971029
  25. DILANTIN [Suspect]
     Dosage: UNK
  26. VASOTEC [Concomitant]
  27. INSULIN [Concomitant]

REACTIONS (1)
  - STEVENS-JOHNSON SYNDROME [None]
